FAERS Safety Report 23047179 (Version 2)
Quarter: 2024Q2

REPORT INFORMATION
  Report Type: Spontaneous
  Country: US (occurrence: US)
  Receive Date: 20231009
  Receipt Date: 20240629
  Transmission Date: 20240716
  Serious: No
  Sender: FDA-Public Use
  Company Number: US-ABBVIE-5434194

PATIENT
  Sex: Female

DRUGS (1)
  1. REFRESH RELIEVA PF [Suspect]
     Active Substance: CARBOXYMETHYLCELLULOSE SODIUM\GLYCERIN
     Indication: Dry eye
     Dosage: CMC 5MG/ML; GLYCERIN 9MG.ML SOL MDPF
     Route: 047
     Dates: start: 202309

REACTIONS (2)
  - Wrong technique in product usage process [Unknown]
  - Product container issue [Not Recovered/Not Resolved]
